FAERS Safety Report 18697619 (Version 1)
Quarter: 2021Q1

REPORT INFORMATION
  Report Type: Report from Study
  Country: US (occurrence: US)
  Receive Date: 20210105
  Receipt Date: 20210105
  Transmission Date: 20210419
  Serious: Yes (Death)
  Sender: FDA-Public Use
  Company Number: US-TAIHO ONCOLOGY  INC-EU-2020-04272

PATIENT
  Age: 59 Year
  Sex: Female
  Weight: 46.04 kg

DRUGS (1)
  1. LONSURF [Suspect]
     Active Substance: TIPIRACIL HYDROCHLORIDE\TRIFLURIDINE
     Indication: COLON CANCER
     Dosage: CYCLE UNKNOWN
     Route: 048
     Dates: start: 20200921, end: 202012

REACTIONS (2)
  - Blood count abnormal [Unknown]
  - Death [Fatal]

NARRATIVE: CASE EVENT DATE: 202012
